FAERS Safety Report 11608099 (Version 1)
Quarter: 2015Q4

REPORT INFORMATION
  Report Type: Spontaneous
  Country: US (occurrence: US)
  Receive Date: 20151007
  Receipt Date: 20151007
  Transmission Date: 20160304
  Serious: Yes (Other)
  Sender: FDA-Public Use
  Company Number: US-JNJFOC-20150926948

PATIENT
  Age: 20 Year
  Sex: Male
  Weight: 49.44 kg

DRUGS (3)
  1. RISPERDAL [Suspect]
     Active Substance: RISPERIDONE
     Indication: PRODUCT USED FOR UNKNOWN INDICATION
     Dosage: THE PATIENT WAS TAKING RISPERIDONE FROM THE AGE OF 7 YEARS.
     Route: 065
  2. TENEX [Concomitant]
     Active Substance: GUANFACINE HYDROCHLORIDE
     Route: 048
  3. CELEXA [Concomitant]
     Active Substance: CITALOPRAM HYDROBROMIDE
     Route: 065

REACTIONS (7)
  - Condition aggravated [Unknown]
  - Drug ineffective [Unknown]
  - Impulsive behaviour [Unknown]
  - Physical assault [Unknown]
  - Drug dose omission [Unknown]
  - Judgement impaired [Unknown]
  - Imprisonment [Unknown]
